FAERS Safety Report 6696140-7 (Version None)
Quarter: 2010Q2

REPORT INFORMATION
  Report Type: 
  Country: None (occurrence: None)
  Receive Date: 20100422
  Receipt Date: 20100407
  Transmission Date: 20101027
  Serious: Yes (Other)
  Sender: FDA-Public Use
  Company Number: AUR-APL-2010-01027

PATIENT
  Age: 34 Year
  Sex: Female
  Weight: 96.4 kg

DRUGS (8)
  1. GABAPENTIN [Suspect]
     Indication: NEURALGIA
     Dosage: 2.7G, DAILY, ORAL
     Route: 048
     Dates: start: 20060101
  2. TOPIRAMATE [Suspect]
     Indication: INTENTIONAL SELF-INJURY
     Dosage: 700MG, ORAL
     Route: 048
     Dates: start: 20090101
  3. DIAZEPAM [Concomitant]
  4. ESCITALOPRAM [Concomitant]
  5. RISPERIDONE [Concomitant]
  6. TRAMADOL HCL [Concomitant]
  7. ... [Concomitant]
  8. WARFARIN [Concomitant]

REACTIONS (3)
  - FOLATE DEFICIENCY [None]
  - GLOSSODYNIA [None]
  - TONGUE ULCERATION [None]
